FAERS Safety Report 7439530-7 (Version None)
Quarter: 2011Q2

REPORT INFORMATION
  Report Type: 
  Country: None (occurrence: None)
  Receive Date: 20110427
  Receipt Date: 20110421
  Transmission Date: 20111010
  Serious: Yes (Hospitalization)
  Sender: FDA-Public Use
  Company Number: FR-BRISTOL-MYERS SQUIBB COMPANY-15692023

PATIENT
  Age: 71 Year
  Sex: Female

DRUGS (9)
  1. HEPT-A-MYL [Concomitant]
     Indication: ORTHOSTATIC HYPOTENSION
     Dates: start: 20100712, end: 20100720
  2. LEPTICUR [Suspect]
     Indication: PARKINSON'S DISEASE
     Dates: start: 20100505, end: 20100720
  3. NOZINAN [Suspect]
     Indication: BIPOLAR DISORDER
     Dates: start: 20100506
  4. ZYPREXA [Suspect]
     Indication: BIPOLAR DISORDER
     Dosage: FOR LONG TIME
  5. COUMADIN [Concomitant]
  6. XANAX [Concomitant]
  7. NOCTAMIDE [Concomitant]
  8. ABILIFY [Suspect]
     Indication: BIPOLAR DISORDER
     Dosage: FOR LONG TIME
  9. LEVOTHYROX [Concomitant]

REACTIONS (4)
  - CONFUSIONAL STATE [None]
  - URINARY RETENTION [None]
  - FAECALOMA [None]
  - PYELONEPHRITIS ACUTE [None]
